FAERS Safety Report 22185996 (Version 2)
Quarter: 2023Q2

REPORT INFORMATION
  Report Type: Spontaneous
  Country: US (occurrence: US)
  Receive Date: 20230407
  Receipt Date: 20230616
  Transmission Date: 20230722
  Serious: Yes (Hospitalization, Other)
  Sender: FDA-Public Use
  Company Number: US-JUBILANT CADISTA PHARMACEUTICALS-2023JUB00145

PATIENT
  Age: 7 Decade
  Sex: Male

DRUGS (5)
  1. LEVOFLOXACIN [Suspect]
     Active Substance: LEVOFLOXACIN
     Indication: Cough
     Dosage: 500 MG, 5 DAYS, INTERMITTENT 5-DAY COURSES
  2. PREDNISONE [Suspect]
     Active Substance: PREDNISONE
     Indication: Cough
     Dosage: 40 MG, 2.5-MONTH COURSE OF ORAL PREDNISONE (20?40MG)
     Route: 048
  3. PREDNISONE [Suspect]
     Active Substance: PREDNISONE
     Dosage: 20 MG, 2.5-MONTH COURSE OF ORAL PREDNISONE (20?40MG)
     Route: 048
  4. DIETARY SUPPLEMENT\PROBIOTICS [Suspect]
     Active Substance: DIETARY SUPPLEMENT\PROBIOTICS NOS
     Indication: Colitis ulcerative
     Dosage: 550 MG, 1 PER DAY
  5. BALSALAZIDE [Concomitant]
     Active Substance: BALSALAZIDE
     Indication: Colitis ulcerative
     Dosage: 750 MG, EVERY 12 HOURS, TWO TIMES A DAY 750MG

REACTIONS (7)
  - Septic shock [Recovered/Resolved]
  - Bacterial translocation [Recovered/Resolved]
  - Prosthetic valve endocarditis [Recovered/Resolved]
  - Gastrointestinal bacterial infection [Recovered/Resolved]
  - Septic cerebral embolism [Recovered/Resolved]
  - Lactobacillus infection [Recovered/Resolved]
  - Subacute endocarditis [Recovered/Resolved]
